FAERS Safety Report 4518480-X (Version None)
Quarter: 2004Q4

REPORT INFORMATION
  Report Type: 
  Country: None (occurrence: None)
  Receive Date: 20041203
  Receipt Date: 20041115
  Transmission Date: 20050328
  Serious: Yes (Disabling, Other)
  Sender: FDA-Public Use
  Company Number: US-MERCK-0411USA02561

PATIENT
  Sex: Male

DRUGS (1)
  1. FOSAMAX [Suspect]
     Indication: OSTEOPOROSIS
     Route: 048
     Dates: start: 20040928, end: 20041005

REACTIONS (8)
  - DYSGEUSIA [None]
  - FATIGUE [None]
  - HYPERHIDROSIS [None]
  - LOCALISED EXFOLIATION [None]
  - MALAISE [None]
  - PRURITUS [None]
  - RASH ERYTHEMATOUS [None]
  - STOMACH DISCOMFORT [None]
